FAERS Safety Report 6901484-7 (Version None)
Quarter: 2010Q3

REPORT INFORMATION
  Report Type: 
  Country: None (occurrence: None)
  Receive Date: 20100803
  Receipt Date: 20080207
  Transmission Date: 20110219
  Serious: No
  Sender: FDA-Public Use
  Company Number: US-PFIZER INC-2008012851

PATIENT
  Sex: Male
  Weight: 64.4 kg

DRUGS (9)
  1. LYRICA [Suspect]
     Indication: ABDOMINAL PAIN UPPER
     Dates: start: 20080205
  2. XANAX [Concomitant]
  3. AMBIEN [Concomitant]
  4. LEVBID [Concomitant]
  5. LEVSIN [Concomitant]
  6. MESALAMINE [Concomitant]
  7. ULTRAM [Concomitant]
  8. KLONOPIN [Concomitant]
  9. LORAZEPAM [Concomitant]

REACTIONS (8)
  - DRY MOUTH [None]
  - DYSPHONIA [None]
  - FATIGUE [None]
  - HUNGER [None]
  - INCREASED APPETITE [None]
  - OROPHARYNGEAL PAIN [None]
  - SOMNOLENCE [None]
  - VISION BLURRED [None]
